FAERS Safety Report 9004817 (Version 1)
Quarter: 2012Q4

REPORT INFORMATION
  Report Type: Spontaneous
  Country: US (occurrence: None)
  Receive Date: 20121226
  Receipt Date: 20121226
  Transmission Date: 20130627
  Serious: Yes (Death)
  Sender: FDA-Public Use
  Company Number: FK201204088

PATIENT
  Age: 70 Year
  Sex: Female

DRUGS (3)
  1. ETOPOSIDE [Suspect]
     Indication: LYMPHOMA
     Dosage: 200 mg/m2, 1 in 12 hr, Intravenous (not otherwise specified)
     Route: 042
  2. CYCLOPHOSPHAMIDE [Suspect]
     Indication: LYMPHOMA
     Dosage: 750 mg/m2, 1 in 12 hr, Intravenous (not otherwise specified)
     Route: 042
  3. CARMUSTINE [Suspect]
     Indication: LYMPHOMA
     Dosage: 112.5 mg/m2, 1 in 1D, Intravenous (not otherwise specified)
     Route: 042

REACTIONS (2)
  - Pneumonitis [None]
  - Respiratory failure [None]
